FAERS Safety Report 9437247 (Version 2)
Quarter: 2013Q3

REPORT INFORMATION
  Report Type: Report from Study
  Country: BR (occurrence: BR)
  Receive Date: 20130802
  Receipt Date: 20130816
  Transmission Date: 20140515
  Serious: Yes (Other)
  Sender: FDA-Public Use
  Company Number: PHHY2013BR082531

PATIENT
  Sex: Female
  Weight: 57 kg

DRUGS (4)
  1. DIOVAN [Suspect]
     Indication: HYPERTENSION
     Dosage: 160 MG, QD (IN MORNING)
     Route: 048
     Dates: end: 20130730
  2. PURAN T4 [Concomitant]
     Indication: THYROID DISORDER
     Dosage: 75 UG, UNK
  3. OLCADIL [Concomitant]
     Indication: SEDATIVE THERAPY
     Dosage: UNK UKN, UNK
  4. ATENOLOL [Concomitant]
     Indication: HYPERTENSION
     Dosage: 10 MG, A DAY
     Route: 048

REACTIONS (5)
  - Polyp [Unknown]
  - Blood pressure increased [Unknown]
  - Fatigue [Unknown]
  - Arrhythmia [Not Recovered/Not Resolved]
  - Drug ineffective [Unknown]
